FAERS Safety Report 20483523 (Version 1)
Quarter: 2022Q1

REPORT INFORMATION
  Report Type: Report from Study
  Country: TW (occurrence: TW)
  Receive Date: 20220217
  Receipt Date: 20220217
  Transmission Date: 20220423
  Serious: Yes (Hospitalization)
  Sender: FDA-Public Use
  Company Number: TW-ABBVIE-22K-153-4281418-00

PATIENT
  Age: 19 Year
  Sex: Female
  Weight: 45 kg

DRUGS (1)
  1. HUMIRA [Suspect]
     Active Substance: ADALIMUMAB
     Indication: Crohn^s disease
     Route: 058
     Dates: start: 20201207, end: 20220103

REACTIONS (7)
  - Gastrointestinal wall thickening [Unknown]
  - Fistula of small intestine [Unknown]
  - Gastrointestinal inflammation [Unknown]
  - Abdominal pain [Not Recovered/Not Resolved]
  - Pyrexia [Unknown]
  - C-reactive protein increased [Unknown]
  - Red blood cell sedimentation rate increased [Unknown]

NARRATIVE: CASE EVENT DATE: 20220201
